FAERS Safety Report 18847623 (Version 1)
Quarter: 2021Q1

REPORT INFORMATION
  Report Type: Report from Study
  Country: CA (occurrence: CA)
  Receive Date: 20210204
  Receipt Date: 20210204
  Transmission Date: 20210419
  Serious: Yes (Other)
  Sender: FDA-Public Use
  Company Number: CA-PFIZER INC-2021083834

PATIENT
  Sex: Male

DRUGS (3)
  1. NAPROXEN. [Concomitant]
     Active Substance: NAPROXEN
     Route: 065
  2. ERELZI [Suspect]
     Active Substance: ETANERCEPT-SZZS
     Indication: JUVENILE IDIOPATHIC ARTHRITIS
     Route: 065
  3. METHOTREXATE SODIUM. [Suspect]
     Active Substance: METHOTREXATE SODIUM
     Route: 058

REACTIONS (9)
  - Headache [Unknown]
  - Increased appetite [Unknown]
  - Mental disorder [Unknown]
  - Tuberculin test positive [Unknown]
  - Anxiety [Unknown]
  - Synovitis [Unknown]
  - Decreased appetite [Unknown]
  - Diarrhoea [Unknown]
  - C-reactive protein abnormal [Unknown]
